FAERS Safety Report 9924695 (Version 1)
Quarter: 2014Q1

REPORT INFORMATION
  Report Type: Spontaneous
  Country: FR (occurrence: FR)
  Receive Date: 20140226
  Receipt Date: 20140226
  Transmission Date: 20141002
  Serious: Yes (Hospitalization)
  Sender: FDA-Public Use
  Company Number: FR-JNJFOC-20140214990

PATIENT
  Age: 28 Year
  Sex: Female

DRUGS (3)
  1. IXPRIM [Suspect]
     Indication: POSTOPERATIVE ANALGESIA
     Route: 048
     Dates: start: 20140204, end: 20140204
  2. DAFALGAN CODEINE [Suspect]
     Indication: POSTOPERATIVE ANALGESIA
     Route: 048
     Dates: start: 20140205, end: 20140205
  3. DAFALGAN [Suspect]
     Indication: POSTOPERATIVE ANALGESIA
     Route: 048
     Dates: start: 20140204, end: 20140204

REACTIONS (1)
  - Pancreatitis acute [Recovered/Resolved]
